FAERS Safety Report 24677358 (Version 1)
Quarter: 2024Q4

REPORT INFORMATION
  Report Type: Spontaneous
  Country: GB (occurrence: GB)
  Receive Date: 20241129
  Receipt Date: 20241129
  Transmission Date: 20250115
  Serious: Yes (Other)
  Sender: TEVA
  Company Number: GB-MHRA-TPP18165723C5282735YC1732021236243

PATIENT
  Age: 31 Year
  Sex: Male
  Weight: 76 kg

DRUGS (6)
  1. SILDENAFIL [Suspect]
     Active Substance: SILDENAFIL
     Indication: Ill-defined disorder
     Route: 065
     Dates: start: 20241022
  2. METFORMIN HYDROCHLORIDE [Concomitant]
     Active Substance: METFORMIN HYDROCHLORIDE
     Indication: Ill-defined disorder
     Dosage: TPP YC - PLEASE RECLASSIFY
     Dates: start: 20240911, end: 20241112
  3. INSULIN ASPART [Concomitant]
     Active Substance: INSULIN ASPART
     Indication: Ill-defined disorder
     Dosage: TIME INTERVAL: 0.33333333 DAYS: TPP YC - PLEASE RECLASSIFY
     Dates: start: 20240911
  4. TADALAFIL [Concomitant]
     Active Substance: TADALAFIL
     Indication: Ill-defined disorder
     Dosage: TIME INTERVAL: AS NECESSARY: 30 MINUTES BEFORE DESIRED EFFECT., TPP YC - PLEASE RECLASSIFY
  5. DEXTROSE [Concomitant]
     Active Substance: DEXTROSE MONOHYDRATE
     Indication: Ill-defined disorder
     Dosage: USE AS DIRECTED, TPP YC - PLEASE RECLASSIFY
     Dates: start: 20241112
  6. LANTUS [Concomitant]
     Active Substance: INSULIN GLARGINE
     Indication: Ill-defined disorder
     Dosage: AS ADVISED BY DIABETES TEAM, TPP YC - PLEASE RECLASSIFY
     Dates: start: 20240911

REACTIONS (1)
  - Hypoglycaemia [Recovered/Resolved]
